FAERS Safety Report 9499595 (Version 1)
Quarter: 2013Q3

REPORT INFORMATION
  Report Type: Spontaneous
  Country: US (occurrence: None)
  Receive Date: 20130903
  Receipt Date: 20130903
  Transmission Date: 20140515
  Serious: Yes (Other)
  Sender: FDA-Public Use
  Company Number: None

PATIENT
  Age: 51 Year
  Sex: Male

DRUGS (1)
  1. RIBAPAK [Suspect]
     Indication: HEPATITIS C
     Route: 048
     Dates: start: 20130320

REACTIONS (9)
  - Muscle spasms [None]
  - Insomnia [None]
  - Alopecia [None]
  - Dizziness [None]
  - Vomiting [None]
  - Dyspnoea [None]
  - Depression [None]
  - Suicidal ideation [None]
  - Dysphonia [None]
